FAERS Safety Report 23178328 (Version 1)
Quarter: 2023Q4

REPORT INFORMATION
  Report Type: Report from Study
  Country: US (occurrence: US)
  Receive Date: 20231113
  Receipt Date: 20231113
  Transmission Date: 20240109
  Serious: Yes (Other)
  Sender: FDA-Public Use
  Company Number: US-TEVA-2023-US-2936821

PATIENT
  Age: 41 Year
  Sex: Female

DRUGS (3)
  1. AUSTEDO XR [Suspect]
     Active Substance: DEUTETRABENAZINE
     Indication: Tardive dyskinesia
     Dosage: 30 MILLIGRAM DAILY;
     Route: 048
     Dates: start: 20230920
  2. AUSTEDO XR [Suspect]
     Active Substance: DEUTETRABENAZINE
     Route: 048
     Dates: start: 2023
  3. HYDROXYZINE [Concomitant]
     Active Substance: HYDROXYZINE HYDROCHLORIDE
     Indication: Product used for unknown indication
     Route: 065

REACTIONS (7)
  - Loss of consciousness [Unknown]
  - Poor quality sleep [Unknown]
  - Anger [Unknown]
  - Dyskinesia [Unknown]
  - Muscle twitching [Unknown]
  - Corrective lens user [Unknown]
  - Wheelchair user [Unknown]

NARRATIVE: CASE EVENT DATE: 20230101
